APPROVED DRUG PRODUCT: DOXEPIN HYDROCHLORIDE
Active Ingredient: DOXEPIN HYDROCHLORIDE
Strength: EQ 50MG BASE
Dosage Form/Route: CAPSULE;ORAL
Application: A212997 | Product #003
Applicant: LANNETT CO INC
Approved: Jul 24, 2020 | RLD: No | RS: No | Type: DISCN